FAERS Safety Report 7998127-0 (Version None)
Quarter: 2011Q4

REPORT INFORMATION
  Report Type: 
  Country: None (occurrence: None)
  Receive Date: 20111221
  Receipt Date: 20110217
  Transmission Date: 20120403
  Serious: No
  Sender: FDA-Public Use
  Company Number: US-GLAXOSMITHKLINE-A0914180A

PATIENT
  Age: 67 Year
  Sex: Female

DRUGS (11)
  1. LIRAGLUTIDE [Concomitant]
  2. GLUCOPHAGE [Concomitant]
  3. AMLODIPINE [Concomitant]
  4. ACIPHEX [Concomitant]
  5. PERCOCET [Concomitant]
  6. LEXAPRO [Concomitant]
  7. KLOR-CON [Concomitant]
  8. LASIX [Concomitant]
  9. SYNTHROID [Concomitant]
  10. DIOVAN [Concomitant]
  11. LOVAZA [Suspect]
     Indication: BLOOD TRIGLYCERIDES INCREASED
     Dosage: 2CAP TWICE PER DAY
     Route: 048
     Dates: start: 20070101

REACTIONS (1)
  - AGEUSIA [None]
